FAERS Safety Report 19426099 (Version 1)
Quarter: 2021Q2

REPORT INFORMATION
  Report Type: Spontaneous
  Country: BR (occurrence: BR)
  Receive Date: 20210616
  Receipt Date: 20210616
  Transmission Date: 20210717
  Serious: Yes (Other)
  Sender: FDA-Public Use
  Company Number: NVSC2021BR127193

PATIENT
  Age: 74 Year
  Sex: Male
  Weight: 100 kg

DRUGS (7)
  1. DIAZEPAM. [Concomitant]
     Active Substance: DIAZEPAM
     Indication: PRODUCT USED FOR UNKNOWN INDICATION
     Dosage: ONLY HE NEEDED
     Route: 065
  2. BENICAR [Concomitant]
     Active Substance: OLMESARTAN MEDOXOMIL
     Indication: BLOOD PRESSURE ABNORMAL
     Dosage: QD (40/25 MG) (3 YRS AGO)
     Route: 065
  3. OMEPRAZOLE. [Concomitant]
     Active Substance: OMEPRAZOLE
     Indication: HERNIA
     Dosage: 1 DF, QD (20 YRS AGO)
     Route: 048
  4. VALSARTAN. [Suspect]
     Active Substance: VALSARTAN
     Indication: HYPERTENSION
     Dosage: 1 DF, QD, STARTED 15 YEARS AGO
     Route: 048
  5. SELOZOK [Concomitant]
     Active Substance: METOPROLOL SUCCINATE
     Indication: ARRHYTHMIA
     Dosage: 1 DF, QD (3 YRS AGO)
     Route: 048
  6. LOSARTAN. [Concomitant]
     Active Substance: LOSARTAN
     Indication: BLOOD PRESSURE MEASUREMENT
     Dosage: 1 DF, QD
     Route: 048
  7. VALIUM [Concomitant]
     Active Substance: DIAZEPAM
     Indication: ARRHYTHMIA
     Dosage: 10 MG(ONLY WHEN NECESSARY)
     Route: 048

REACTIONS (15)
  - Psoriasis [Not Recovered/Not Resolved]
  - Eye allergy [Not Recovered/Not Resolved]
  - Dry skin [Not Recovered/Not Resolved]
  - Eye pruritus [Not Recovered/Not Resolved]
  - Eye infection [Not Recovered/Not Resolved]
  - Pruritus [Not Recovered/Not Resolved]
  - Buttock injury [Not Recovered/Not Resolved]
  - Eye inflammation [Not Recovered/Not Resolved]
  - Nail psoriasis [Not Recovered/Not Resolved]
  - Psoriatic arthropathy [Unknown]
  - Arthralgia [Not Recovered/Not Resolved]
  - Pain in extremity [Not Recovered/Not Resolved]
  - Skin exfoliation [Not Recovered/Not Resolved]
  - Pustule [Not Recovered/Not Resolved]
  - Arthritis [Not Recovered/Not Resolved]

NARRATIVE: CASE EVENT DATE: 202103
